FAERS Safety Report 15419935 (Version 1)
Quarter: 2018Q3

REPORT INFORMATION
  Report Type: Spontaneous
  Country: US (occurrence: US)
  Receive Date: 20180924
  Receipt Date: 20180924
  Transmission Date: 20181010
  Serious: No
  Sender: FDA-Public Use
  Company Number: US-ADAMAS PHARMA, LLC-2018ADA01015

PATIENT
  Age: 90 Year
  Sex: Female

DRUGS (2)
  1. UNSPECIFIED LEVODOPA PRODUCT [Concomitant]
  2. GOCOVRI [Suspect]
     Active Substance: AMANTADINE
     Indication: DYSKINESIA
     Dosage: UNK
     Dates: start: 2018

REACTIONS (1)
  - Hallucination [Not Recovered/Not Resolved]

NARRATIVE: CASE EVENT DATE: 201805
